FAERS Safety Report 11452591 (Version 1)
Quarter: 2015Q3

REPORT INFORMATION
  Report Type: Spontaneous
  Country: US (occurrence: US)
  Receive Date: 20150903
  Receipt Date: 20150903
  Transmission Date: 20151125
  Serious: No
  Sender: FDA-Public Use
  Company Number: US-ROCHE-1061276

PATIENT
  Sex: Male

DRUGS (7)
  1. PEGASYS [Suspect]
     Active Substance: PEGINTERFERON ALFA-2A
     Indication: CHRONIC HEPATITIS C
     Route: 058
     Dates: start: 20080520
  2. GLUCOPHAGE [Concomitant]
     Active Substance: METFORMIN HYDROCHLORIDE
  3. TELAPREVIR [Suspect]
     Active Substance: TELAPREVIR
     Indication: CHRONIC HEPATITIS C
     Route: 065
     Dates: start: 20120410
  4. LIPITOR [Concomitant]
     Active Substance: ATORVASTATIN CALCIUM
  5. PEGASYS [Suspect]
     Active Substance: PEGINTERFERON ALFA-2A
     Route: 058
     Dates: start: 20120410
  6. RIBASPHERE [Suspect]
     Active Substance: RIBAVIRIN
     Indication: CHRONIC HEPATITIS C
     Route: 048
     Dates: start: 20120410
  7. LACTULOSE. [Concomitant]
     Active Substance: LACTULOSE

REACTIONS (3)
  - Therapeutic response decreased [Unknown]
  - Genital rash [Unknown]
  - Unevaluable event [Unknown]
